FAERS Safety Report 5902818-2 (Version None)
Quarter: 2008Q3

REPORT INFORMATION
  Report Type: 
  Country: None (occurrence: None)
  Receive Date: 20080930
  Receipt Date: 20080924
  Transmission Date: 20090109
  Serious: Yes (Hospitalization)
  Sender: FDA-Public Use
  Company Number: KR-BAYER-200826866GPV

PATIENT
  Age: 67 Year
  Sex: Male
  Weight: 58 kg

DRUGS (15)
  1. SORAFENIB [Suspect]
     Indication: GASTRIC CANCER
     Dosage: TOTAL DAILY DOSE: 800 MG
     Route: 048
     Dates: start: 20080704, end: 20080920
  2. CAPECITABINE [Suspect]
     Indication: GASTRIC CANCER
     Route: 048
     Dates: start: 20080704, end: 20080918
  3. CISPLATIN [Suspect]
     Indication: GASTRIC CANCER
     Route: 042
     Dates: start: 20080704, end: 20080704
  4. CISPLATIN [Suspect]
     Route: 042
     Dates: start: 20080704, end: 20080814
  5. DEXAMETHASONE [Concomitant]
     Indication: ANTIEMETIC SUPPORTIVE CARE
     Route: 042
     Dates: start: 20080704, end: 20080904
  6. DEXAMETHASONE [Concomitant]
     Route: 048
     Dates: start: 20080704, end: 20080907
  7. ONSERAN [Concomitant]
     Indication: ANTIEMETIC SUPPORTIVE CARE
     Route: 042
     Dates: start: 20080704, end: 20080904
  8. ONSERAN [Concomitant]
     Route: 048
     Dates: start: 20080704, end: 20080909
  9. ZANTAC [Concomitant]
     Indication: ANTACID THERAPY
     Route: 048
     Dates: start: 20080704, end: 20080907
  10. LASIX [Concomitant]
     Indication: DIURETIC THERAPY
     Route: 042
     Dates: start: 20080704, end: 20080904
  11. POTASSIUM CHLORIDE [Concomitant]
     Indication: ELECTROLYTE IMBALANCE
     Route: 042
     Dates: start: 20080704, end: 20080904
  12. MAGNESIUM SULFATE [Concomitant]
     Indication: ELECTROLYTE IMBALANCE
     Route: 042
     Dates: start: 20080704, end: 20080904
  13. SIGMART [Concomitant]
     Indication: HYPERTENSION
     Route: 048
     Dates: start: 20080826, end: 20080916
  14. HERBEN [Concomitant]
     Indication: ISCHAEMIC HEART DISEASE PROPHYLAXIS
     Route: 048
     Dates: start: 20080826, end: 20080916
  15. BISOPROLOL FUMARATE [Concomitant]
     Indication: ISCHAEMIC HEART DISEASE PROPHYLAXIS
     Route: 048
     Dates: start: 20080826, end: 20080916

REACTIONS (3)
  - ARTHRALGIA [None]
  - EMBOLISM [None]
  - PAIN IN EXTREMITY [None]
